FAERS Safety Report 5241768-4 (Version None)
Quarter: 2007Q1

REPORT INFORMATION
  Report Type: 
  Country: None (occurrence: None)
  Receive Date: 20070220
  Receipt Date: 20070207
  Transmission Date: 20070707
  Serious: Yes (Disabling, Other)
  Sender: FDA-Public Use
  Company Number: 2007GB00275

PATIENT
  Sex: Female

DRUGS (2)
  1. SEROQUEL [Suspect]
     Indication: BIPOLAR DISORDER
     Dosage: 200 MG QAM + 300 MG HS
     Route: 048
  2. DIAZEPAM [Concomitant]

REACTIONS (3)
  - HEADACHE [None]
  - MIGRAINE [None]
  - PHOTOPHOBIA [None]
